FAERS Safety Report 10245077 (Version 1)
Quarter: 2014Q2

REPORT INFORMATION
  Report Type: Spontaneous
  Country: GB (occurrence: None)
  Receive Date: 20140616
  Receipt Date: 20140616
  Transmission Date: 20141212
  Serious: No
  Sender: FDA-Public Use
  Company Number: AUR-APL-2014-06276

PATIENT
  Age: 63 Year
  Sex: Female

DRUGS (4)
  1. LISINOPRIL TABLETS 5MG [Suspect]
     Indication: BLOOD PRESSURE
     Route: 048
     Dates: start: 20140414
  2. LISINOPRIL TABLETS 5MG [Suspect]
     Indication: HYPERTENSION
     Route: 048
     Dates: start: 20140414
  3. BENDROFLUAZIDE (BENDROFLUMETHIAZIDE) [Concomitant]
  4. AMITRIPTYLINE (AMITRIPTYLINE) [Concomitant]

REACTIONS (4)
  - Cough [None]
  - Nasal congestion [None]
  - Eye discharge [None]
  - Ocular hyperaemia [None]
